FAERS Safety Report 16694064 (Version 1)
Quarter: 2019Q3

REPORT INFORMATION
  Report Type: Spontaneous
  Country: US (occurrence: US)
  Receive Date: 20190812
  Receipt Date: 20190812
  Transmission Date: 20191004
  Serious: Yes (Hospitalization, Other)
  Sender: FDA-Public Use
  Company Number: US-GLAXOSMITHKLINE-US2019143915

PATIENT
  Age: 56 Year
  Sex: Female

DRUGS (5)
  1. NALTREXONE [Concomitant]
     Active Substance: NALTREXONE
     Dosage: UNK
  2. ATENOLOL. [Concomitant]
     Active Substance: ATENOLOL
     Dosage: UNK
  3. BENLYSTA [Suspect]
     Active Substance: BELIMUMAB
     Indication: SYSTEMIC LUPUS ERYTHEMATOSUS
     Dosage: 200 MG, CYC
     Route: 058
     Dates: start: 20190620, end: 20190704
  4. PLAQUENIL [Concomitant]
     Active Substance: HYDROXYCHLOROQUINE SULFATE
     Dosage: UNK
  5. CITALOPRAM [Concomitant]
     Active Substance: CITALOPRAM HYDROBROMIDE
     Dosage: UNK

REACTIONS (15)
  - Lymphadenopathy [Unknown]
  - Paraesthesia [Unknown]
  - Muscle spasms [Unknown]
  - Parotid gland enlargement [Unknown]
  - Ventricular extrasystoles [Unknown]
  - Pruritus [Unknown]
  - Hypoaesthesia [Unknown]
  - Akathisia [Unknown]
  - Swelling face [Unknown]
  - Headache [Unknown]
  - Musculoskeletal stiffness [Unknown]
  - Salivary gland pain [Unknown]
  - Abdominal pain [Unknown]
  - Umbilical hernia repair [Unknown]
  - Product dose omission [Unknown]

NARRATIVE: CASE EVENT DATE: 2019
